FAERS Safety Report 9701683 (Version 2)
Quarter: 2013Q4

REPORT INFORMATION
  Report Type: Spontaneous
  Country: US (occurrence: US)
  Receive Date: 20131119
  Receipt Date: 20131119
  Transmission Date: 20140711
  Serious: Yes (Other)
  Sender: FDA-Public Use
  Company Number: US-SAVIENT-2013S1000031

PATIENT
  Sex: Male

DRUGS (8)
  1. KRYSTEXXA [Suspect]
     Indication: GOUT
     Route: 042
     Dates: start: 20130405, end: 20130405
  2. KRYSTEXXA [Suspect]
     Route: 042
     Dates: start: 20130423, end: 20130423
  3. ALLOPURINOL [Concomitant]
     Indication: GOUT
  4. MOBIC [Concomitant]
     Indication: PAIN
  5. PREDNISONE [Concomitant]
     Indication: ALLERGY PROPHYLAXIS
     Dates: start: 20130421, end: 20130422
  6. PREDNISONE [Concomitant]
     Dates: start: 20130423, end: 20130423
  7. CLARITIN [Concomitant]
     Indication: ALLERGY PROPHYLAXIS
     Dates: start: 20130423, end: 20130423
  8. SOLUMEDROL [Concomitant]
     Indication: ALLERGY PROPHYLAXIS
     Route: 042
     Dates: start: 20130423, end: 20130423

REACTIONS (2)
  - Infusion related reaction [Recovered/Resolved]
  - Therapeutic response decreased [Not Recovered/Not Resolved]
